FAERS Safety Report 8538688-6 (Version None)
Quarter: 2012Q3

REPORT INFORMATION
  Report Type: 
  Country: None (occurrence: None)
  Receive Date: 20120726
  Receipt Date: 20120716
  Transmission Date: 20120928
  Serious: Yes (Hospitalization)
  Sender: FDA-Public Use
  Company Number: US-BAYER-2012-072318

PATIENT
  Age: 33 Year
  Sex: Female

DRUGS (3)
  1. LIPOSYN [CARTHAMUS TINCTORIUS OIL,GLYCEROL,OVOLECITHIN] [Concomitant]
     Indication: EXERCISE ADEQUATE
  2. YASMIN [Suspect]
     Indication: CONTRACEPTION
  3. TOLTERODINE TARTRATE [Concomitant]
     Dosage: 2 MG, TAKE ONE OR 2 CAPSULES EVERY DAY
     Route: 048
     Dates: start: 20110711

REACTIONS (1)
  - PULMONARY EMBOLISM [None]
